FAERS Safety Report 17287018 (Version 2)
Quarter: 2025Q3

REPORT INFORMATION
  Report Type: Spontaneous
  Country: US (occurrence: US)
  Receive Date: 20200120
  Receipt Date: 20250805
  Transmission Date: 20251020
  Serious: Yes (Life-Threatening, Hospitalization, Other)
  Sender: AUROBINDO
  Company Number: US-ASTRAZENECA-2019SE58023

PATIENT
  Age: 82 Year
  Sex: Female

DRUGS (2)
  1. LEVOFLOXACIN [Interacting]
     Active Substance: LEVOFLOXACIN
     Indication: Product used for unknown indication
     Route: 065
  2. THEOPHYLLINE [Interacting]
     Active Substance: THEOPHYLLINE
     Indication: Product used for unknown indication
     Route: 065

REACTIONS (8)
  - Drug level above therapeutic [Unknown]
  - Drug interaction [Unknown]
  - Atrial fibrillation [Unknown]
  - Hypokalaemia [Unknown]
  - Hypotension [Unknown]
  - Dizziness [Unknown]
  - Tremor [Unknown]
  - Nausea [Unknown]
